FAERS Safety Report 9543367 (Version 1)
Quarter: 2013Q3

REPORT INFORMATION
  Report Type: Spontaneous
  Country: FI (occurrence: FI)
  Receive Date: 20130923
  Receipt Date: 20130923
  Transmission Date: 20140515
  Serious: Yes (Hospitalization)
  Sender: FDA-Public Use
  Company Number: FI-JNJFOC-20130910053

PATIENT
  Age: 14 Year
  Sex: Female

DRUGS (5)
  1. TOPIMAX [Suspect]
     Indication: EPILEPSY
     Route: 048
     Dates: start: 20130807, end: 20130913
  2. TOPIMAX [Suspect]
     Indication: MIGRAINE PROPHYLAXIS
     Route: 048
     Dates: start: 20130807, end: 20130913
  3. FRISIUM [Concomitant]
     Indication: EPILEPSY
     Dosage: 10 MG TABLET 40 MGX2
     Route: 065
     Dates: start: 20120423
  4. KEPPRA [Concomitant]
     Dosage: 1000 MG FILM COATED TABLETS 1500 MG X 2
     Route: 065
     Dates: start: 20120830
  5. OXIKLORIN [Concomitant]
     Dosage: 300 MG COATED TABLET 300 MG X 1
     Route: 065
     Dates: start: 20121212

REACTIONS (2)
  - Leukopenia [Recovered/Resolved]
  - Neutropenia [Recovered/Resolved]
